FAERS Safety Report 22955390 (Version 3)
Quarter: 2023Q4

REPORT INFORMATION
  Report Type: Report from Study
  Country: MY (occurrence: MY)
  Receive Date: 20230918
  Receipt Date: 20231002
  Transmission Date: 20240109
  Serious: Yes (Hospitalization)
  Sender: FDA-Public Use
  Company Number: MY-JNJFOC-20230920492

PATIENT
  Age: 81 Year
  Sex: Female

DRUGS (14)
  1. AMIVANTAMAB [Suspect]
     Active Substance: AMIVANTAMAB
     Indication: Non-small cell lung cancer metastatic
     Route: 042
     Dates: start: 20211125, end: 20230216
  2. FELODIPINE [Concomitant]
     Active Substance: FELODIPINE
     Indication: Hypertension
     Route: 048
     Dates: start: 20170101
  3. POTASSIUM CHLORIDE [Concomitant]
     Active Substance: POTASSIUM CHLORIDE
     Indication: Hypokalaemia
     Route: 048
     Dates: start: 20211201
  4. HYDROCORTISONE [Concomitant]
     Active Substance: HYDROCORTISONE
     Indication: Dermatitis acneiform
     Dosage: DOSE: 1 (UNITS NOT PROVIDED)
     Route: 061
     Dates: start: 20211207
  5. AQUEOUS [EMULSIFYING WAX;PARAFFIN, LIQUID;WHITE SOFT PARAFFIN] [Concomitant]
     Indication: Dermatitis acneiform
     Dosage: DOSE: 1  (UNITS NOT PROVIDED)
     Route: 061
     Dates: start: 20211211
  6. OMEPRAZOLE [Concomitant]
     Active Substance: OMEPRAZOLE
     Indication: Dermatitis acneiform
     Route: 048
     Dates: start: 20211211
  7. RIVAROXABAN [Concomitant]
     Active Substance: RIVAROXABAN
     Indication: Pulmonary embolism
     Route: 048
     Dates: start: 20220209
  8. BETAMETHASONE VALERATE [Concomitant]
     Active Substance: BETAMETHASONE VALERATE
     Indication: Paronychia
     Dosage: DOSE: 1 (UNITS NOT PROVIDED)
     Route: 061
     Dates: start: 20220414
  9. MUPIROCIN [Concomitant]
     Active Substance: MUPIROCIN
     Indication: Paronychia
     Dosage: DOSE: 1 (UNITS NOT PROVIDED)
     Route: 061
     Dates: start: 20220414
  10. WHITE PINE OIL [Concomitant]
     Active Substance: WHITE PINE OIL
     Indication: Rash
     Route: 061
     Dates: start: 20220414
  11. WHITE PINE OIL [Concomitant]
     Active Substance: WHITE PINE OIL
     Indication: Dermatitis acneiform
  12. ISOTRETINOIN [Concomitant]
     Active Substance: ISOTRETINOIN
     Indication: Rash
     Dosage: FREQUENCY: ONCE
     Route: 048
     Dates: start: 20220420
  13. ISOTRETINOIN [Concomitant]
     Active Substance: ISOTRETINOIN
     Indication: Paronychia
  14. CLOTRIMAZOLE [Concomitant]
     Active Substance: CLOTRIMAZOLE
     Indication: Paronychia
     Dosage: DOSE: 1 (UNITS NOT PROVIDED), FREQUENCY: ONCE
     Route: 061
     Dates: start: 20220414

REACTIONS (1)
  - Fall [Not Recovered/Not Resolved]

NARRATIVE: CASE EVENT DATE: 20230908
